FAERS Safety Report 4737180-4 (Version None)
Quarter: 2005Q3

REPORT INFORMATION
  Report Type: 
  Country: None (occurrence: None)
  Receive Date: 20050808
  Receipt Date: 20050802
  Transmission Date: 20060218
  Serious: Yes (Hospitalization)
  Sender: FDA-Public Use
  Company Number: NL-MERCK-0508NLD00005

PATIENT
  Age: 68 Year
  Sex: Male

DRUGS (1)
  1. PEPCID [Suspect]
     Route: 048

REACTIONS (1)
  - ATRIOVENTRICULAR BLOCK COMPLETE [None]
